FAERS Safety Report 10899630 (Version 4)
Quarter: 2017Q4

REPORT INFORMATION
  Report Type: Spontaneous
  Country: JP (occurrence: JP)
  Receive Date: 20150309
  Receipt Date: 20171003
  Transmission Date: 20180320
  Serious: Yes (Hospitalization, Other)
  Sender: FDA-Public Use
  Company Number: JP-BRISTOL-MYERS SQUIBB COMPANY-BMS-2015-012605

PATIENT
  Age: 87 Year
  Sex: Male
  Weight: 53 kg

DRUGS (10)
  1. SOTACOR [Suspect]
     Active Substance: SOTALOL HYDROCHLORIDE
     Indication: VENTRICULAR TACHYCARDIA
     Route: 065
  2. GLACTIV [Concomitant]
     Active Substance: SITAGLIPTIN
     Indication: TYPE 2 DIABETES MELLITUS
     Dosage: 50 MG, QD
     Route: 048
     Dates: start: 201110
  3. TRESIBA [Concomitant]
     Active Substance: INSULIN DEGLUDEC
     Indication: TYPE 2 DIABETES MELLITUS
     Dosage: 14 UNIT, QD
     Route: 058
     Dates: start: 201411
  4. SOTACOR [Suspect]
     Active Substance: SOTALOL HYDROCHLORIDE
     Indication: HYPERTROPHIC CARDIOMYOPATHY
     Dosage: 40 MG, UNK
     Route: 048
     Dates: start: 2006
  5. ELIQUIS [Suspect]
     Active Substance: APIXABAN
     Indication: CEREBROVASCULAR ACCIDENT PROPHYLAXIS
     Dosage: 2.5 MG, BID
     Route: 048
     Dates: start: 20141211, end: 20141225
  6. MAINTATE [Concomitant]
     Active Substance: BISOPROLOL FUMARATE
     Indication: VENTRICULAR TACHYCARDIA
     Route: 065
  7. TRAPIDIL [Concomitant]
     Active Substance: TRAPIDIL
     Indication: HYPERTROPHIC CARDIOMYOPATHY
     Dosage: 50 MG, TID
     Route: 048
     Dates: start: 201101
  8. GLUCOBAY [Concomitant]
     Active Substance: ACARBOSE
     Indication: TYPE 2 DIABETES MELLITUS
     Dosage: 100 MG, TID
     Route: 048
     Dates: start: 2007
  9. FOSAMAC [Concomitant]
     Active Substance: ALENDRONATE SODIUM
     Indication: PRODUCT USED FOR UNKNOWN INDICATION
     Dosage: 35 MG, QD
     Route: 048
     Dates: start: 201108
  10. MAINTATE [Concomitant]
     Active Substance: BISOPROLOL FUMARATE
     Indication: HYPERTROPHIC CARDIOMYOPATHY
     Dosage: 0.625 MG, BID
     Route: 048
     Dates: start: 201305

REACTIONS (4)
  - Thrombophlebitis septic [Recovered/Resolved]
  - Systemic candida [Recovered/Resolved]
  - Transient ischaemic attack [Recovered/Resolved]
  - Pulmonary alveolar haemorrhage [Recovered/Resolved]

NARRATIVE: CASE EVENT DATE: 20141225
